FAERS Safety Report 13315938 (Version 2)
Quarter: 2017Q2

REPORT INFORMATION
  Report Type: Spontaneous
  Country: US (occurrence: US)
  Receive Date: 20170310
  Receipt Date: 20170501
  Transmission Date: 20170830
  Serious: No
  Sender: FDA-Public Use
  Company Number: US-009507513-1702USA012165

PATIENT
  Age: 21 Year
  Sex: Female
  Weight: 121.1 kg

DRUGS (1)
  1. NEXPLANON [Suspect]
     Active Substance: ETONOGESTREL
     Indication: PRODUCT USED FOR UNKNOWN INDICATION
     Dosage: 68 MG, ONE ROD PER 3 YEARS
     Route: 059
     Dates: start: 201608, end: 20170227

REACTIONS (5)
  - Implant site scar [Unknown]
  - Weight increased [Unknown]
  - Device breakage [Recovered/Resolved]
  - Pain [Unknown]
  - No adverse event [Unknown]

NARRATIVE: CASE EVENT DATE: 20170227
